FAERS Safety Report 19655270 (Version 2)
Quarter: 2021Q3

REPORT INFORMATION
  Report Type: Other
  Country: ZA (occurrence: ZA)
  Receive Date: 20210804
  Receipt Date: 20210812
  Transmission Date: 20211014
  Serious: Yes (Other)
  Sender: FDA-Public Use
  Company Number: ZA-MACLEODS PHARMACEUTICALS US LTD-MAC2021032077

PATIENT

DRUGS (3)
  1. LAMIVUDINE. [Suspect]
     Active Substance: LAMIVUDINE
     Indication: HIV INFECTION
     Dosage: 300 MILLIGRAM, QD, ONE COURSE, PRIOR TO CONCEPTION, DURING FIRST TRIMESTER
     Route: 048
     Dates: start: 20050512
  2. LOPINAVIR/RITONAVIR [Suspect]
     Active Substance: LOPINAVIR\RITONAVIR
     Indication: HIV INFECTION
     Dosage: 1000 MILLIGRAM, QD, ONE COURSE, PRIOR TO CONCEPTION, EXPOSURE DURING FIRST TRIMESTER
     Route: 048
     Dates: start: 20081119
  3. ZIDOVUDINE. [Suspect]
     Active Substance: ZIDOVUDINE
     Indication: HIV INFECTION
     Dosage: 600 MILLIGRAM, QD, ONE COURSE, PRIOR TO CONCEPTION, EXPOSURE DURING FIRST TRIMESTER
     Route: 048
     Dates: start: 20081119

REACTIONS (2)
  - Maternal exposure during pregnancy [Unknown]
  - Abortion induced [Unknown]

NARRATIVE: CASE EVENT DATE: 20210608
